FAERS Safety Report 15716927 (Version 3)
Quarter: 2025Q2

REPORT INFORMATION
  Report Type: Report from Study
  Country: US (occurrence: US)
  Receive Date: 20181213
  Receipt Date: 20250605
  Transmission Date: 20250717
  Serious: Yes (Other)
  Sender: TAKEDA
  Company Number: US-SHIRE-US201847992

PATIENT
  Age: 15 Year
  Sex: Male

DRUGS (5)
  1. IDURSULFASE [Suspect]
     Active Substance: IDURSULFASE
     Indication: Mucopolysaccharidosis II
     Dosage: UNK UNK, 1/WEEK
     Dates: start: 20170720
  2. IDURSULFASE [Suspect]
     Active Substance: IDURSULFASE
     Indication: Gaucher^s disease
     Dosage: UNK UNK, 1/WEEK
     Dates: start: 20170728
  3. IDURSULFASE [Suspect]
     Active Substance: IDURSULFASE
     Dosage: UNK UNK, 1/WEEK
     Dates: start: 20180728
  4. IDURSULFASE [Suspect]
     Active Substance: IDURSULFASE
     Dosage: UNK UNK, 1/WEEK
  5. IDURSULFASE [Suspect]
     Active Substance: IDURSULFASE

REACTIONS (4)
  - Foot deformity [Unknown]
  - Influenza [Unknown]
  - Diarrhoea [Not Recovered/Not Resolved]
  - Product dose omission issue [Not Recovered/Not Resolved]

NARRATIVE: CASE EVENT DATE: 20181207
